FAERS Safety Report 6670875-4 (Version None)
Quarter: 2010Q2

REPORT INFORMATION
  Report Type: 
  Country: None (occurrence: None)
  Receive Date: 20100406
  Receipt Date: 20100406
  Transmission Date: 20101027
  Serious: Yes (Hospitalization)
  Sender: FDA-Public Use
  Company Number: None

PATIENT
  Sex: Male
  Weight: 107.3 kg

DRUGS (2)
  1. CISPLATIN [Suspect]
     Dosage: 45 MG
     Dates: end: 20100210
  2. TAXOL [Suspect]
     Dosage: 91 MG
     Dates: end: 20100210

REACTIONS (5)
  - DEHYDRATION [None]
  - HYPOPHAGIA [None]
  - NAUSEA [None]
  - RADIATION OESOPHAGITIS [None]
  - VOMITING [None]
